FAERS Safety Report 12864869 (Version 1)
Quarter: 2016Q4

REPORT INFORMATION
  Report Type: Spontaneous
  Country: US (occurrence: US)
  Receive Date: 20161019
  Receipt Date: 20161019
  Transmission Date: 20170207
  Serious: Yes (Hospitalization, Disabling, Other)
  Sender: FDA-Public Use
  Company Number: None

PATIENT
  Age: 62 Year
  Weight: 121.5 kg

DRUGS (4)
  1. SIMVASTATIN. [Concomitant]
     Active Substance: SIMVASTATIN
  2. DIOVAN [Concomitant]
     Active Substance: VALSARTAN
  3. METHIMAZOLE. [Concomitant]
     Active Substance: METHIMAZOLE
  4. VERAPAMIL ER 360 MG [Suspect]
     Active Substance: VERAPAMIL HYDROCHLORIDE
     Indication: HYPERTENSION
     Route: 048
     Dates: start: 20161017, end: 20161017

REACTIONS (5)
  - Dizziness [None]
  - Haemorrhage [None]
  - Product substitution issue [None]
  - Fatigue [None]
  - Bedridden [None]

NARRATIVE: CASE EVENT DATE: 20161017
